FAERS Safety Report 19864251 (Version 1)
Quarter: 2021Q3

REPORT INFORMATION
  Report Type: Other
  Country: US (occurrence: US)
  Receive Date: 20210921
  Receipt Date: 20210921
  Transmission Date: 20211014
  Serious: No
  Sender: FDA-Public Use
  Company Number: US-ACORDA-ACO_170305_2021

PATIENT
  Age: 80 Year
  Sex: Female

DRUGS (2)
  1. INBRIJA [Suspect]
     Active Substance: LEVODOPA
     Indication: PARKINSON^S DISEASE
     Dosage: 84 MILLIGRAM, PRN NOT TO EXCEED 3 DOSES PER DAY
     Dates: start: 20201127
  2. INBRIJA [Suspect]
     Active Substance: LEVODOPA
     Indication: ON AND OFF PHENOMENON

REACTIONS (2)
  - Product distribution issue [Unknown]
  - Multiple sclerosis [Unknown]

NARRATIVE: CASE EVENT DATE: 20210913
